FAERS Safety Report 12876501 (Version 1)
Quarter: 2016Q4

REPORT INFORMATION
  Report Type: Spontaneous
  Country: US (occurrence: US)
  Receive Date: 20161024
  Receipt Date: 20161024
  Transmission Date: 20170207
  Serious: Yes (Other)
  Sender: FDA-Public Use
  Company Number: US-BAUSCH-BL-2016-025566

PATIENT
  Age: 76 Year
  Sex: Female
  Weight: 53.12 kg

DRUGS (2)
  1. DIAZEPAM. [Concomitant]
     Active Substance: DIAZEPAM
     Indication: SLEEP DISORDER
     Route: 048
  2. ALREX [Suspect]
     Active Substance: LOTEPREDNOL ETABONATE
     Indication: EYE DISORDER
     Route: 047
     Dates: start: 2015

REACTIONS (3)
  - Eye haemorrhage [Not Recovered/Not Resolved]
  - Headache [Not Recovered/Not Resolved]
  - Thrombosis [Not Recovered/Not Resolved]

NARRATIVE: CASE EVENT DATE: 201607
